FAERS Safety Report 9277363 (Version 1)
Quarter: 2013Q2

REPORT INFORMATION
  Report Type: Spontaneous
  Country: US (occurrence: None)
  Receive Date: 20130503
  Receipt Date: 20130503
  Transmission Date: 20140414
  Serious: Yes (Other)
  Sender: FDA-Public Use
  Company Number: None

PATIENT
  Age: 61 Year
  Sex: Female
  Weight: 81.19 kg

DRUGS (1)
  1. LAMICTAL [Suspect]
     Dosage: 1 DAILY
     Dates: start: 201303, end: 201303

REACTIONS (3)
  - Pruritus generalised [None]
  - Erythema [None]
  - Skin disorder [None]
